FAERS Safety Report 9788156 (Version 1)
Quarter: 2013Q4

REPORT INFORMATION
  Report Type: Spontaneous
  Country: US (occurrence: None)
  Receive Date: 20131227
  Receipt Date: 20131227
  Transmission Date: 20140711
  Serious: Yes (Hospitalization)
  Sender: FDA-Public Use
  Company Number: None

PATIENT
  Age: 86 Year
  Sex: Male
  Weight: 77.27 kg

DRUGS (12)
  1. PERCOCET [Suspect]
  2. DOBUTAMINE [Concomitant]
  3. DOCUSATE [Concomitant]
  4. COREG [Concomitant]
  5. MVI [Concomitant]
  6. ZOLPIDEM [Concomitant]
  7. LISINOPRIL [Concomitant]
  8. PROAIR [Concomitant]
  9. MAG OX [Concomitant]
  10. COUMADIN [Concomitant]
  11. ADVAIR [Concomitant]
  12. BUMEX [Concomitant]

REACTIONS (2)
  - Fall [None]
  - Anaemia [None]
